FAERS Safety Report 4946184-8 (Version None)
Quarter: 2006Q1

REPORT INFORMATION
  Report Type: 
  Country: None (occurrence: None)
  Receive Date: 20060118
  Receipt Date: 20050111
  Transmission Date: 20060701
  Serious: Yes (Other)
  Sender: FDA-Public Use
  Company Number: US-JNJFOC-20041200637

PATIENT
  Sex: Female

DRUGS (1)
  1. DOXIL (DOXORUBICIN HYDROCHLORIDE) LIPOSME INJECTION [Suspect]
     Indication: DRUG USE FOR UNKNOWN INDICATION
     Dosage: 40 MG/M2 X 3 CYCLES

REACTIONS (2)
  - BLISTER [None]
  - SKIN EXFOLIATION [None]
